FAERS Safety Report 11422299 (Version 1)
Quarter: 2015Q3

REPORT INFORMATION
  Report Type: Spontaneous
  Country: CA (occurrence: None)
  Receive Date: 20150826
  Receipt Date: 20150826
  Transmission Date: 20151125
  Serious: Yes (Hospitalization)
  Sender: FDA-Public Use
  Company Number: None

PATIENT
  Age: 8 Year
  Sex: Female
  Weight: 22.1 kg

DRUGS (5)
  1. ONCASPAR [Suspect]
     Active Substance: PEGASPARGASE
     Dates: end: 20150802
  2. CYTARABINE. [Suspect]
     Active Substance: CYTARABINE
     Dates: end: 20150729
  3. METHOTREXATE [Suspect]
     Active Substance: METHOTREXATE
     Dates: end: 20150806
  4. DEXAMETHASONE. [Suspect]
     Active Substance: DEXAMETHASONE
     Dates: end: 20150818
  5. VINCRISTINE SULFATE. [Suspect]
     Active Substance: VINCRISTINE SULFATE
     Dates: end: 20150814

REACTIONS (11)
  - Syncope [None]
  - Faecal volume increased [None]
  - Large intestine perforation [None]
  - Pyrexia [None]
  - Constipation [None]
  - Pseudomonas test positive [None]
  - Colitis [None]
  - Neutropenia [None]
  - Hyperglycaemia [None]
  - Pneumoperitoneum [None]
  - Diaphragmatic disorder [None]

NARRATIVE: CASE EVENT DATE: 20150818
